FAERS Safety Report 10885777 (Version 1)
Quarter: 2015Q1

REPORT INFORMATION
  Report Type: Other
  Country: US (occurrence: US)
  Receive Date: 20150304
  Receipt Date: 20150304
  Transmission Date: 20150721
  Serious: Yes (Other)
  Sender: FDA-Public Use
  Company Number: US-ACORDA-ACO_109347_2015

PATIENT
  Sex: Female

DRUGS (1)
  1. AMPYRA [Suspect]
     Active Substance: DALFAMPRIDINE
     Indication: MULTIPLE SCLEROSIS
     Dosage: 10 MG, BID
     Route: 048

REACTIONS (13)
  - Tremor [Unknown]
  - Memory impairment [Unknown]
  - Oral surgery [Unknown]
  - Bladder disorder [Unknown]
  - Pain [Unknown]
  - Asthenia [Unknown]
  - Dysphoria [Unknown]
  - Anaemia [Unknown]
  - Fatigue [Unknown]
  - Dehydration [Unknown]
  - Gait disturbance [Unknown]
  - Dizziness [Unknown]
  - Headache [Unknown]
